FAERS Safety Report 9990108 (Version 3)
Quarter: 2014Q2

REPORT INFORMATION
  Report Type: Spontaneous
  Country: US (occurrence: None)
  Receive Date: 20131119
  Receipt Date: 20140515
  Transmission Date: 20141212
  Serious: Yes (Other)
  Sender: FDA-Public Use
  Company Number: ADR-2013-01384

PATIENT
  Sex: Female

DRUGS (7)
  1. BACLOFEN [Suspect]
     Indication: PAIN
  2. MORPHINE [Suspect]
     Indication: PAIN
  3. DILAUDID (HYDROMORPHONE) [Suspect]
  4. PERCOCET [Suspect]
  5. BENADRYL [Suspect]
  6. PEPCID [Suspect]
  7. ZYRTEC [Suspect]

REACTIONS (13)
  - Anxiety [None]
  - Drug hypersensitivity [None]
  - Rash [None]
  - Device alarm issue [None]
  - Ovarian mass [None]
  - Bladder mass [None]
  - Pruritus [None]
  - Appendicectomy [None]
  - Autoimmune disorder [None]
  - Urticaria [None]
  - Urticaria [None]
  - Flushing [None]
  - Muscle spasms [None]
